FAERS Safety Report 20640879 (Version 1)
Quarter: 2022Q1

REPORT INFORMATION
  Report Type: Spontaneous
  Country: US (occurrence: US)
  Receive Date: 20220327
  Receipt Date: 20220327
  Transmission Date: 20220423
  Serious: No
  Sender: FDA-Public Use
  Company Number: US-JNJFOC-20220331698

PATIENT
  Age: 74 Year
  Sex: Male

DRUGS (3)
  1. IMODIUM [Suspect]
     Active Substance: LOPERAMIDE HYDROCHLORIDE
     Indication: Diarrhoea
     Route: 065
     Dates: start: 2021
  2. OFEV [Concomitant]
     Active Substance: NINTEDANIB
     Indication: Pulmonary fibrosis
     Dosage: VERUM CAPSULE?300 MG, 150 MG 1 IN 0.5 DAY
     Route: 048
     Dates: start: 20210709
  3. OFEV [Concomitant]
     Active Substance: NINTEDANIB
     Dosage: 200 MG, 100 MG 1 IN 0.5 DAY
     Route: 048
     Dates: start: 20210709

REACTIONS (1)
  - Gastrointestinal motility disorder [Unknown]

NARRATIVE: CASE EVENT DATE: 20211101
